FAERS Safety Report 12099462 (Version 1)
Quarter: 2016Q1

REPORT INFORMATION
  Report Type: Spontaneous
  Country: US (occurrence: None)
  Receive Date: 20160219
  Receipt Date: 20160219
  Transmission Date: 20160526
  Serious: Yes (Hospitalization)
  Sender: FDA-Public Use
  Company Number: None

PATIENT
  Age: 93 Year
  Sex: Female
  Weight: 75.75 kg

DRUGS (16)
  1. PLAVIX [Concomitant]
     Active Substance: CLOPIDOGREL BISULFATE
  2. TYLENOL [Concomitant]
     Active Substance: ACETAMINOPHEN
  3. RISPERDAL CONSTA [Suspect]
     Active Substance: RISPERIDONE
     Indication: DEMENTIA
     Dates: start: 201509, end: 20151111
  4. WELCHOL [Concomitant]
     Active Substance: COLESEVELAM HYDROCHLORIDE
  5. LIPITOR [Concomitant]
     Active Substance: ATORVASTATIN CALCIUM
  6. PLAVIX [Concomitant]
     Active Substance: CLOPIDOGREL BISULFATE
  7. ONGLYZA [Concomitant]
     Active Substance: SAXAGLIPTIN HYDROCHLORIDE
  8. RISPERDAL CONSTA [Suspect]
     Active Substance: RISPERIDONE
     Indication: DEPRESSION
     Dates: start: 201509, end: 20151111
  9. MULTIVITAMIN [Concomitant]
     Active Substance: VITAMINS
  10. TRAZODONE [Concomitant]
     Active Substance: TRAZODONE HYDROCHLORIDE
  11. MULTIVITAMIN C [Concomitant]
  12. ONZLYA [Concomitant]
  13. VITAMIN D3 [Concomitant]
     Active Substance: CHOLECALCIFEROL
  14. VITAMIN C [Concomitant]
     Active Substance: ASCORBIC ACID
  15. VITAMIN D3 [Concomitant]
     Active Substance: CHOLECALCIFEROL
  16. LIPITOR [Concomitant]
     Active Substance: ATORVASTATIN CALCIUM

REACTIONS (3)
  - Irritability [None]
  - Aggression [None]
  - Psychotic disorder [None]

NARRATIVE: CASE EVENT DATE: 20151026
